FAERS Safety Report 5684524-5 (Version None)
Quarter: 2008Q1

REPORT INFORMATION
  Report Type: 
  Country: None (occurrence: None)
  Receive Date: 20080328
  Receipt Date: 20080327
  Transmission Date: 20080703
  Serious: Yes (Life-Threatening, Hospitalization)
  Sender: FDA-Public Use
  Company Number: BG-JNJFOC-20080306427

PATIENT
  Sex: Male
  Weight: 35 kg

DRUGS (1)
  1. CONCERTA [Suspect]
     Indication: ATTENTION DEFICIT/HYPERACTIVITY DISORDER
     Dosage: THE PATIENT TAKES THE DRUG IN THE MORNING.
     Route: 048
     Dates: start: 20071215

REACTIONS (1)
  - EPILEPSY [None]
